FAERS Safety Report 24836927 (Version 1)
Quarter: 2025Q1

REPORT INFORMATION
  Report Type: Spontaneous
  Country: US (occurrence: None)
  Receive Date: 20250110
  Receipt Date: 20250110
  Transmission Date: 20250408
  Serious: Yes (Hospitalization)
  Sender: FDA-CTU
  Company Number: None

PATIENT
  Sex: Male

DRUGS (3)
  1. WELIREG [Suspect]
     Active Substance: BELZUTIFAN
     Indication: Renal cancer
     Dosage: M120 MG DAILY ORAL
     Route: 048
     Dates: start: 20241222
  2. CANNABIS SATIVA SUBSP. INDICA TOP [Suspect]
     Active Substance: CANNABIS SATIVA SUBSP. INDICA TOP
  3. OXYGEN [Suspect]
     Active Substance: OXYGEN

REACTIONS (9)
  - Increased appetite [None]
  - Vomiting [None]
  - Frequent bowel movements [None]
  - Haemoptysis [None]
  - Productive cough [None]
  - Sepsis [None]
  - Pneumonia [None]
  - Therapy cessation [None]
  - Oxygen saturation decreased [None]
